FAERS Safety Report 9677251 (Version 1)
Quarter: 2013Q4

REPORT INFORMATION
  Report Type: Spontaneous
  Country: US (occurrence: US)
  Receive Date: 20131108
  Receipt Date: 20131108
  Transmission Date: 20140711
  Serious: No
  Sender: FDA-Public Use
  Company Number: US-009507513-1311USA001319

PATIENT
  Sex: Female

DRUGS (1)
  1. NEXPLANON [Suspect]
     Indication: CONTRACEPTION
     Route: 059

REACTIONS (4)
  - Unintended pregnancy [Unknown]
  - Vomiting [Unknown]
  - Breast discharge [Unknown]
  - Dizziness [Unknown]
